FAERS Safety Report 7581421-5 (Version None)
Quarter: 2011Q2

REPORT INFORMATION
  Report Type: 
  Country: None (occurrence: None)
  Receive Date: 20110629
  Receipt Date: 20110615
  Transmission Date: 20111010
  Serious: Yes (Hospitalization)
  Sender: FDA-Public Use
  Company Number: PHHY2011US53254

PATIENT
  Sex: Female

DRUGS (2)
  1. DIOVAN [Suspect]
     Route: 065
  2. DIURETICS [Suspect]
     Route: 065

REACTIONS (2)
  - URINARY TRACT INFECTION [None]
  - SEPSIS [None]
